FAERS Safety Report 15783116 (Version 1)
Quarter: 2019Q1

REPORT INFORMATION
  Report Type: Report from Study
  Country: MX (occurrence: MX)
  Receive Date: 20190102
  Receipt Date: 20190102
  Transmission Date: 20190417
  Serious: Yes (Other)
  Sender: FDA-Public Use
  Company Number: MX-UCBSA-2018056862

PATIENT
  Sex: Female
  Weight: 33 kg

DRUGS (12)
  1. LACOSAMIDE. [Suspect]
     Active Substance: LACOSAMIDE
     Dosage: 2 TABLETS DAILY FOR 2 AND A HALF YEARS
  2. CLONAZEPAM. [Concomitant]
     Active Substance: CLONAZEPAM
     Indication: MALAISE
     Dosage: 40 MG; 0.25 TABLET 3 TIMES A MONTH
     Route: 048
  3. LACOSAMIDE. [Suspect]
     Active Substance: LACOSAMIDE
     Indication: EPILEPSY
     Dosage: 50 MG, 2X/DAY (BID) (FOR A MONTH)
     Route: 048
     Dates: start: 2011
  4. BUSCAPINA [Concomitant]
     Indication: ABDOMINAL PAIN UPPER
  5. LACOSAMIDE. [Suspect]
     Active Substance: LACOSAMIDE
     Dosage: 100 MG, 3X/DAY (TID)
     Route: 048
  6. LACOSAMIDE. [Suspect]
     Active Substance: LACOSAMIDE
     Dosage: 1.5 DF, 2X/DAY (BID) 200MG
  7. LEVETIRACETAM. [Suspect]
     Active Substance: LEVETIRACETAM
     Indication: INFANTILE SPASMS
     Dosage: 1000 MG, 2X/DAY (BID)
  8. PARACETAMOL [Concomitant]
     Active Substance: ACETAMINOPHEN
     Indication: HEADACHE
     Dosage: 1 DF, 2X/WEEK
  9. LEVETIRACETAM. [Suspect]
     Active Substance: LEVETIRACETAM
     Indication: LENNOX-GASTAUT SYNDROME
  10. LEVETIRACETAM. [Suspect]
     Active Substance: LEVETIRACETAM
     Indication: EPILEPSY
  11. BUSCOPAN [Concomitant]
     Active Substance: BUTYLSCOPOLAMINE BROMIDE
     Indication: ABDOMINAL PAIN UPPER
     Dosage: 1 DF, 4X/WEEK
  12. LACOSAMIDE. [Suspect]
     Active Substance: LACOSAMIDE
     Dosage: 100 MG, 2X/DAY (BID) (FOR 3 MONTHS)

REACTIONS (2)
  - Off label use [Unknown]
  - Seizure [Recovered/Resolved]
